FAERS Safety Report 9929550 (Version 2)
Quarter: 2014Q1

REPORT INFORMATION
  Report Type: Spontaneous
  Country: AU (occurrence: AU)
  Receive Date: 20140227
  Receipt Date: 20140227
  Transmission Date: 20141002
  Serious: Yes (Life-Threatening, Hospitalization)
  Sender: FDA-Public Use
  Company Number: AU-B.I. PHARMACEUTICALS,INC./RIDGEFIELD-2014-BI-04044AU

PATIENT
  Age: 64 Year
  Sex: Male
  Weight: 114 kg

DRUGS (6)
  1. PRADAXA [Suspect]
     Indication: ATRIAL FIBRILLATION
     Dosage: 300 MG
     Route: 065
     Dates: start: 20140115, end: 20140125
  2. GABAPENTIN [Concomitant]
     Dosage: 1800 MG
     Route: 065
  3. FRUSEMIDE [Concomitant]
     Route: 065
  4. DOTHIEPIN [Concomitant]
     Route: 065
  5. SLOW K [Concomitant]
     Route: 065
  6. METFORMIN [Concomitant]
     Dosage: 1000 MG
     Route: 065

REACTIONS (2)
  - Acute lung injury [Not Recovered/Not Resolved]
  - Pulmonary haemorrhage [Unknown]
